FAERS Safety Report 7968867-8 (Version None)
Quarter: 2011Q4

REPORT INFORMATION
  Report Type: 
  Country: None (occurrence: None)
  Receive Date: 20111209
  Receipt Date: 20111130
  Transmission Date: 20120403
  Serious: Yes (Other)
  Sender: FDA-Public Use
  Company Number: NZ-ABBOTT-11P-118-0881289-00

PATIENT
  Sex: Male

DRUGS (2)
  1. PRED [Concomitant]
     Indication: PRODUCT USED FOR UNKNOWN INDICATION
  2. HUMIRA [Suspect]
     Indication: PSORIATIC ARTHROPATHY

REACTIONS (5)
  - LIVER SARCOIDOSIS [None]
  - LIVER FUNCTION TEST ABNORMAL [None]
  - HEPATIC CIRRHOSIS [None]
  - GRANULOMATOUS LIVER DISEASE [None]
  - ANGIOTENSIN CONVERTING ENZYME INCREASED [None]
